FAERS Safety Report 5567111-9 (Version None)
Quarter: 2007Q4

REPORT INFORMATION
  Report Type: 
  Country: None (occurrence: None)
  Receive Date: 20071130
  Receipt Date: 20070911
  Transmission Date: 20080405
  Serious: No
  Sender: FDA-Public Use
  Company Number: US200709002220

PATIENT
  Age: 67 Year
  Sex: Male
  Weight: 108.4 kg

DRUGS (7)
  1. BYETTA [Suspect]
     Indication: TYPE 2 DIABETES MELLITUS
     Dosage: 10 UG, 2/D, SUBCUTANEOUS, 10 UG, 2/D, SUBCUTANEOUS
     Route: 058
     Dates: start: 20070301, end: 20070101
  2. BYETTA [Suspect]
     Indication: TYPE 2 DIABETES MELLITUS
     Dosage: 10 UG, 2/D, SUBCUTANEOUS, 10 UG, 2/D, SUBCUTANEOUS
     Route: 058
     Dates: start: 20070101
  3. GLUCOPHAGE [Concomitant]
  4. AVANDIA [Concomitant]
  5. IBUPROFEN [Concomitant]
  6. TYLENOL ARTHRITIS (PARACETAMOL) [Concomitant]
  7. AIRBRON (ACETYLCYSTEINE) [Concomitant]

REACTIONS (9)
  - BLOOD GLUCOSE INCREASED [None]
  - DECREASED APPETITE [None]
  - HEADACHE [None]
  - INJECTION SITE PAIN [None]
  - NAUSEA [None]
  - OSTEOARTHRITIS [None]
  - SINUS CONGESTION [None]
  - SOMNOLENCE [None]
  - WEIGHT DECREASED [None]
